FAERS Safety Report 7176676-5 (Version None)
Quarter: 2010Q4

REPORT INFORMATION
  Report Type: 
  Country: None (occurrence: None)
  Receive Date: 20101220
  Receipt Date: 20101208
  Transmission Date: 20110411
  Serious: No
  Sender: FDA-Public Use
  Company Number: US-JNJFOC-20101204076

PATIENT
  Sex: Female
  Weight: 59.88 kg

DRUGS (3)
  1. DURAGESIC-100 [Suspect]
     Indication: BACK PAIN
     Route: 062
  2. SOMA [Concomitant]
     Indication: MUSCLE RELAXANT THERAPY
     Dosage: 3-4
     Route: 048
  3. PERCOCET [Concomitant]
     Indication: PAIN
     Dosage: 5/325
     Route: 048

REACTIONS (1)
  - DRUG ADMINISTRATION ERROR [None]
